FAERS Safety Report 7955570-3 (Version None)
Quarter: 2011Q4

REPORT INFORMATION
  Report Type: 
  Country: None (occurrence: None)
  Receive Date: 20111202
  Receipt Date: 20111123
  Transmission Date: 20120403
  Serious: Yes (Other)
  Sender: FDA-Public Use
  Company Number: US-ASTRAZENECA-2010SE19824

PATIENT
  Age: 49 Year
  Sex: Female

DRUGS (1)
  1. CRESTOR [Suspect]
     Route: 048

REACTIONS (7)
  - INTERVERTEBRAL DISC DEGENERATION [None]
  - MUSCLE STRAIN [None]
  - LABORATORY TEST ABNORMAL [None]
  - DRUG DOSE OMISSION [None]
  - FALL [None]
  - CHEST PAIN [None]
  - FOOT FRACTURE [None]
